FAERS Safety Report 9889100 (Version 2)
Quarter: 2014Q1

REPORT INFORMATION
  Report Type: Report from Study
  Country: JP (occurrence: JP)
  Receive Date: 20140211
  Receipt Date: 20140303
  Transmission Date: 20141002
  Serious: Yes (Hospitalization, Other)
  Sender: FDA-Public Use
  Company Number: JP-TAKEDA-2014TJP001351

PATIENT
  Age: 71 Year
  Sex: Female
  Weight: 67.7 kg

DRUGS (8)
  1. ALOGLIPTIN [Suspect]
     Indication: TYPE 2 DIABETES MELLITUS
     Dosage: 25 MG, QD
     Route: 048
     Dates: start: 20120828, end: 20130409
  2. AMARYL [Concomitant]
     Indication: TYPE 2 DIABETES MELLITUS
     Dosage: 2 MG, 1 DAYS
     Route: 048
     Dates: end: 20130409
  3. METGLUCO [Concomitant]
     Indication: TYPE 2 DIABETES MELLITUS
     Dosage: 750 MG,1 DAYS
     Route: 048
     Dates: end: 20130301
  4. SEIBULE [Concomitant]
     Indication: TYPE 2 DIABETES MELLITUS
     Dosage: 150 MG, 1 DAYS
     Route: 048
     Dates: start: 20130110, end: 20130301
  5. BAYASPIRIN [Concomitant]
     Dosage: 200 MG,1 DAYS
     Route: 048
     Dates: start: 20121126, end: 20130409
  6. PLAVIX [Concomitant]
     Dosage: 75 MG, 1 DAYS
     Route: 048
     Dates: start: 20121126, end: 20121207
  7. MICARDIS [Concomitant]
     Dosage: 40 MG, 1 DAYS
     Route: 048
     Dates: start: 20121202, end: 20130409
  8. CRESTOR [Concomitant]
     Indication: DYSLIPIDAEMIA
     Dosage: 2.5 MG, 1 DAYS
     Route: 048
     Dates: start: 20130110, end: 20130301

REACTIONS (1)
  - Thrombotic cerebral infarction [Recovered/Resolved with Sequelae]
